FAERS Safety Report 18515461 (Version 2)
Quarter: 2020Q4

REPORT INFORMATION
  Report Type: Other
  Country: CA (occurrence: CA)
  Receive Date: 20201118
  Receipt Date: 20201127
  Transmission Date: 20210114
  Serious: Yes (Other)
  Sender: FDA-Public Use
  Company Number: CA-APOTEX-2020AP021668

PATIENT
  Age: 24 Year
  Sex: Female

DRUGS (9)
  1. METHOTREXATE. [Suspect]
     Active Substance: METHOTREXATE
     Indication: PRODUCT USED FOR UNKNOWN INDICATION
     Dosage: UNK
     Route: 048
  2. CETIRIZINE HYDROCHLORIDE. [Concomitant]
     Active Substance: CETIRIZINE HYDROCHLORIDE
     Indication: PRODUCT USED FOR UNKNOWN INDICATION
     Dosage: UNK
     Route: 065
  3. PREDNISONE. [Suspect]
     Active Substance: PREDNISONE
     Indication: PRODUCT USED FOR UNKNOWN INDICATION
     Dosage: UNK
     Route: 048
  4. GUAIFENESIN;SALBUTAMOL SULFATE [Concomitant]
     Active Substance: ALBUTEROL\GUAIFENESIN
     Indication: ASTHMA
     Dosage: UNK
     Route: 065
  5. KETOCONAZOLE. [Concomitant]
     Active Substance: KETOCONAZOLE
     Indication: PRODUCT USED FOR UNKNOWN INDICATION
     Dosage: UNK
     Route: 065
  6. CORTISONE [Concomitant]
     Active Substance: CORTISONE
     Indication: PRODUCT USED FOR UNKNOWN INDICATION
     Dosage: UNK
     Route: 061
  7. PROTOPIC [Concomitant]
     Active Substance: TACROLIMUS
     Indication: PRODUCT USED FOR UNKNOWN INDICATION
     Dosage: UNK
     Route: 061
  8. SINGULAIR [Concomitant]
     Active Substance: MONTELUKAST SODIUM
     Indication: PRODUCT USED FOR UNKNOWN INDICATION
     Dosage: UNK
     Route: 065
  9. CYCLOSPORINE. [Suspect]
     Active Substance: CYCLOSPORINE
     Indication: ECZEMA
     Dosage: 75 MILLIGRAM, BID
     Route: 048

REACTIONS (17)
  - Depressive symptom [Recovered/Resolved]
  - Suicidal ideation [Recovered/Resolved]
  - Epigastric discomfort [Recovered/Resolved]
  - Off label use [Recovered/Resolved]
  - Anxiety [Recovered/Resolved]
  - Dyspnoea [Recovered/Resolved]
  - Urinary tract infection [Recovered/Resolved]
  - Secretion discharge [Recovered/Resolved]
  - Pruritus [Recovered/Resolved]
  - Immunosuppressant drug level increased [Recovered/Resolved]
  - Scar [Recovered/Resolved]
  - Rhinitis [Recovered/Resolved]
  - Drug ineffective [Recovered/Resolved]
  - Abdominal discomfort [Recovered/Resolved]
  - Eczema [Recovered/Resolved]
  - Fungal infection [Recovered/Resolved]
  - Cystitis [Recovered/Resolved]
